FAERS Safety Report 20343178 (Version 1)
Quarter: 2022Q1

REPORT INFORMATION
  Report Type: Spontaneous
  Country: DE (occurrence: DE)
  Receive Date: 20220117
  Receipt Date: 20220117
  Transmission Date: 20220424
  Serious: Yes (Other)
  Sender: FDA-Public Use
  Company Number: DE-ROCHE-2979787

PATIENT
  Sex: Male

DRUGS (16)
  1. PREDNISOLONE [Suspect]
     Active Substance: PREDNISOLONE
     Indication: Lymphoma
     Route: 065
     Dates: start: 20210318, end: 20210924
  2. DEXAMETHASONE [Suspect]
     Active Substance: DEXAMETHASONE
     Indication: Lymphoma
     Route: 065
     Dates: start: 20210928, end: 20211029
  3. DEXAMETHASONE [Suspect]
     Active Substance: DEXAMETHASONE
     Route: 065
     Dates: start: 20210318, end: 20210924
  4. CYTARABINE [Suspect]
     Active Substance: CYTARABINE
     Indication: Lymphoma
     Route: 065
     Dates: start: 20210318, end: 20210924
  5. CARBOPLATIN [Suspect]
     Active Substance: CARBOPLATIN
     Indication: Lymphoma
     Route: 065
     Dates: start: 20210928, end: 20211029
  6. DOXORUBICIN HYDROCHLORIDE [Suspect]
     Active Substance: DOXORUBICIN HYDROCHLORIDE
     Indication: Lymphoma
     Route: 065
     Dates: start: 20210318, end: 20210924
  7. ETOPOSIDE [Suspect]
     Active Substance: ETOPOSIDE
     Indication: Lymphoma
     Route: 065
     Dates: start: 20210318, end: 20210924
  8. VINCRISTINE [Suspect]
     Active Substance: VINCRISTINE
     Indication: Lymphoma
     Route: 065
     Dates: start: 20210318, end: 20210924
  9. VINCRISTINE [Suspect]
     Active Substance: VINCRISTINE
     Route: 065
     Dates: start: 20210928, end: 20211029
  10. RITUXAN [Suspect]
     Active Substance: RITUXIMAB
     Indication: Lymphoma
     Route: 065
     Dates: start: 20210318, end: 20210924
  11. RITUXAN [Suspect]
     Active Substance: RITUXIMAB
     Route: 065
     Dates: start: 20210928, end: 20211029
  12. IFOSFAMIDE [Suspect]
     Active Substance: IFOSFAMIDE
     Indication: Lymphoma
     Route: 065
     Dates: start: 20210318, end: 20210924
  13. IFOSFAMIDE [Suspect]
     Active Substance: IFOSFAMIDE
     Route: 065
     Dates: start: 20210928, end: 20211029
  14. VINDESINE SULFATE [Suspect]
     Active Substance: VINDESINE SULFATE
     Indication: Lymphoma
     Route: 065
     Dates: start: 20210318, end: 20210924
  15. CYCLOPHOSPHAMIDE [Suspect]
     Active Substance: CYCLOPHOSPHAMIDE
     Indication: Lymphoma
     Route: 065
     Dates: start: 20210318, end: 20210924
  16. METHOTREXATE [Suspect]
     Active Substance: METHOTREXATE
     Indication: Lymphoma
     Route: 065
     Dates: start: 20210318, end: 20210924

REACTIONS (4)
  - Febrile neutropenia [Unknown]
  - Lymphoma [Not Recovered/Not Resolved]
  - Sepsis [Unknown]
  - Alanine aminotransferase increased [Unknown]
